FAERS Safety Report 24605877 (Version 1)
Quarter: 2024Q4

REPORT INFORMATION
  Report Type: Spontaneous
  Country: US (occurrence: US)
  Receive Date: 20241111
  Receipt Date: 20241111
  Transmission Date: 20250114
  Serious: Yes (Death, Other)
  Sender: ASTELLAS
  Company Number: US-ASTELLAS-2024-AER-017325

PATIENT
  Age: 31 Year
  Sex: Female

DRUGS (3)
  1. TACROLIMUS [Suspect]
     Active Substance: TACROLIMUS
     Indication: Prophylaxis against transplant rejection
     Route: 065
     Dates: start: 1999
  2. TACROLIMUS [Suspect]
     Active Substance: TACROLIMUS
     Indication: Prophylaxis against graft versus host disease
     Dosage: IMMUNOSUPPRESSION WAS DECREASED
     Route: 065
     Dates: end: 2022
  3. TACROLIMUS [Suspect]
     Active Substance: TACROLIMUS
     Dosage: REDUCED DOSE
     Route: 065
     Dates: start: 2022

REACTIONS (14)
  - Pancytopenia [Fatal]
  - Disease recurrence [Fatal]
  - Acute myeloid leukaemia [Fatal]
  - Anal cancer stage III [Recovered/Resolved]
  - Papilloma viral infection [Recovered/Resolved]
  - Post transplant lymphoproliferative disorder [Recovered/Resolved]
  - Diffuse large B-cell lymphoma [Recovered/Resolved]
  - Malignant neoplasm progression [Recovered/Resolved]
  - Marrow hyperplasia [Recovering/Resolving]
  - Erythroid dysplasia [Recovering/Resolving]
  - Myelodysplastic syndrome [Recovering/Resolving]
  - Pneumonia [Unknown]
  - Cellulitis [Unknown]
  - Off label use [Unknown]

NARRATIVE: CASE EVENT DATE: 20130101
